FAERS Safety Report 18604225 (Version 2)
Quarter: 2020Q4

REPORT INFORMATION
  Report Type: Report from Study
  Country: IL (occurrence: IL)
  Receive Date: 20201211
  Receipt Date: 20201230
  Transmission Date: 20210114
  Serious: Yes (Death, Hospitalization)
  Sender: FDA-Public Use
  Company Number: IL-IPSEN BIOPHARMACEUTICALS, INC.-2020-24749

PATIENT
  Age: 88 Year
  Sex: Male

DRUGS (1)
  1. SOMATULINE AUTOGEL [Suspect]
     Active Substance: LANREOTIDE ACETATE
     Indication: NEUROENDOCRINE TUMOUR
     Route: 058
     Dates: start: 20201112, end: 2020

REACTIONS (3)
  - Urea urine increased [Recovering/Resolving]
  - Creatinine urine increased [Recovering/Resolving]
  - Death [Fatal]

NARRATIVE: CASE EVENT DATE: 20201113
